FAERS Safety Report 8840354 (Version 1)
Quarter: 2012Q4

REPORT INFORMATION
  Report Type: 
  Country: GB (occurrence: GB)
  Receive Date: 20121015
  Receipt Date: 20121015
  Transmission Date: 20130627
  Serious: Yes (Life-Threatening, Hospitalization, Disabling, Other)
  Sender: FDA-Public Use
  Company Number: GB-TEVA-363161ISR

PATIENT
  Age: 3 Year
  Sex: Female

DRUGS (4)
  1. LEVOTHYROXINE [Suspect]
     Indication: HYPOTHYROIDISM
     Dosage: Started at 25mcg and increased to150mcg once a day (in 25mcg, 50mcg and 100mcg tablets)
     Route: 048
     Dates: start: 20081208
  2. LEVOTHYROXINE [Suspect]
     Indication: HYPOTHYROIDISM
     Dosage: Started at 25mcg and increased to150mcg once a day (in 25mcg, 50mcg and 100mcg tablets)
     Route: 048
     Dates: end: 20101225
  3. LIOTHYRONINE [Concomitant]
     Indication: HYPOTHYROIDISM
  4. THYROID [Concomitant]
     Indication: HYPOTHYROIDISM

REACTIONS (10)
  - Thyroid disorder [Recovered/Resolved with Sequelae]
  - Fibromyalgia [Recovered/Resolved]
  - Abasia [Recovered/Resolved]
  - Dysarthria [Recovered/Resolved]
  - Weight increased [Recovered/Resolved]
  - Fatigue [Recovered/Resolved]
  - Migraine [Recovered/Resolved]
  - Eating disorder [Recovered/Resolved]
  - Condition aggravated [Recovered/Resolved]
  - Hyperhidrosis [Recovered/Resolved]
